FAERS Safety Report 18714356 (Version 2)
Quarter: 2021Q1

REPORT INFORMATION
  Report Type: Report from Study
  Country: US (occurrence: US)
  Receive Date: 20210108
  Receipt Date: 20210311
  Transmission Date: 20210419
  Serious: No
  Sender: FDA-Public Use
  Company Number: US-AMGEN-USASP2021000894

PATIENT
  Age: 74 Year
  Sex: Female

DRUGS (1)
  1. PROLIA [Suspect]
     Active Substance: DENOSUMAB
     Indication: OSTEOPOROSIS POSTMENOPAUSAL
     Dosage: UNK
     Route: 065
     Dates: start: 20201111

REACTIONS (8)
  - Alopecia [Unknown]
  - Abdominal distension [Unknown]
  - Myalgia [Recovered/Resolved]
  - Increased appetite [Unknown]
  - Bone pain [Recovered/Resolved]
  - Gastrointestinal disorder [Unknown]
  - Eating disorder [Unknown]
  - Gastrooesophageal reflux disease [Unknown]

NARRATIVE: CASE EVENT DATE: 202012
